FAERS Safety Report 20177919 (Version 1)
Quarter: 2021Q4

REPORT INFORMATION
  Report Type: Spontaneous
  Country: FR (occurrence: FR)
  Receive Date: 20211213
  Receipt Date: 20211213
  Transmission Date: 20220303
  Serious: Yes (Other)
  Sender: FDA-Public Use
  Company Number: None

PATIENT
  Age: 9 Year
  Sex: Male

DRUGS (4)
  1. CLOBAZAM [Suspect]
     Active Substance: CLOBAZAM
     Indication: Epilepsy
     Dosage: UNK UNK, Q12H
     Route: 048
     Dates: start: 20210823
  2. ZONISAMIDE [Suspect]
     Active Substance: ZONISAMIDE
     Indication: Epilepsy
     Dosage: 125 MG, QD
     Route: 048
     Dates: start: 20210823
  3. INOVELON [Suspect]
     Active Substance: RUFINAMIDE
     Indication: Epilepsy
     Dosage: 960 MG, QD
     Route: 048
     Dates: start: 20200101
  4. CANNABIDIOL [Suspect]
     Active Substance: CANNABIDIOL
     Indication: Epilepsy
     Dosage: 300 MG, QD
     Route: 048
     Dates: start: 20210915

REACTIONS (1)
  - Gingivitis [Not Recovered/Not Resolved]

NARRATIVE: CASE EVENT DATE: 20211020
